FAERS Safety Report 10434339 (Version 2)
Quarter: 2014Q3

REPORT INFORMATION
  Report Type: Spontaneous
  Country: JP (occurrence: JP)
  Receive Date: 20140905
  Receipt Date: 20140911
  Transmission Date: 20150326
  Serious: Yes (Other)
  Sender: FDA-Public Use
  Company Number: PHHY2014JP112689

PATIENT
  Age: 36 Year
  Sex: Female

DRUGS (2)
  1. MEDROL [Suspect]
     Active Substance: METHYLPREDNISOLONE
     Indication: MIXED CONNECTIVE TISSUE DISEASE
  2. NEORAL [Suspect]
     Active Substance: CYCLOSPORINE
     Indication: MIXED CONNECTIVE TISSUE DISEASE
     Route: 048

REACTIONS (8)
  - Necrotising fasciitis [Unknown]
  - Swelling [Unknown]
  - Shock [Unknown]
  - Altered state of consciousness [Unknown]
  - Restlessness [Unknown]
  - Ulcer [Unknown]
  - Streptococcus test positive [Unknown]
  - Blister [Unknown]
